FAERS Safety Report 19834678 (Version 1)
Quarter: 2021Q3

REPORT INFORMATION
  Report Type: Other
  Country: US (occurrence: US)
  Receive Date: 20210915
  Receipt Date: 20210915
  Transmission Date: 20211014
  Serious: No
  Sender: FDA-Public Use
  Company Number: US-LEADIANT BIOSCIENCES INC-2020STPI000382

PATIENT
  Sex: Female

DRUGS (6)
  1. LEUCOVORIN CA [Concomitant]
     Active Substance: LEUCOVORIN CALCIUM
  2. ONDANSETRON [Concomitant]
     Active Substance: ONDANSETRON
  3. DEXAMETHASONE. [Concomitant]
     Active Substance: DEXAMETHASONE
  4. MATULANE [Suspect]
     Active Substance: PROCARBAZINE HYDROCHLORIDE
     Indication: NON-HODGKIN^S LYMPHOMA METASTATIC
     Dosage: 3 CAPSULES QD FOR 8 DAYS ON CYCLES 1,3 AND 5
     Route: 048
     Dates: start: 20200805
  5. ERYTHROMYCIN. [Concomitant]
     Active Substance: ERYTHROMYCIN
  6. SMZ?TMP DS [Concomitant]
     Active Substance: SULFAMETHOXAZOLE\TRIMETHOPRIM

REACTIONS (1)
  - Paraesthesia [Unknown]
